FAERS Safety Report 8798077 (Version 1)
Quarter: 2012Q4

REPORT INFORMATION
  Report Type: 
  Country: JP (occurrence: JP)
  Receive Date: 20120920
  Receipt Date: 20120920
  Transmission Date: 20130627
  Serious: Yes (Death, Other)
  Sender: FDA-Public Use
  Company Number: JP-AMGEN-JPNSP2012058225

PATIENT

DRUGS (2)
  1. ENBREL [Suspect]
     Indication: RHEUMATOID ARTHRITIS
     Dosage: 25 mg, weekly
     Route: 058
     Dates: start: 20120814
  2. METOLATE [Suspect]
     Dosage: 6 mg, weekly
     Route: 048
     Dates: start: 20120815

REACTIONS (3)
  - Bone marrow failure [Fatal]
  - Pneumonia [Fatal]
  - Sepsis [Unknown]
